FAERS Safety Report 12716333 (Version 1)
Quarter: 2016Q3

REPORT INFORMATION
  Report Type: Spontaneous
  Country: US (occurrence: US)
  Receive Date: 20160906
  Receipt Date: 20160906
  Transmission Date: 20161109
  Serious: Yes (Other)
  Sender: FDA-Public Use
  Company Number: US-BAYER-2016-167683

PATIENT
  Age: 77 Year
  Sex: Female

DRUGS (2)
  1. ASPIRIN 81MG [Suspect]
     Active Substance: ASPIRIN
     Indication: ANTIPLATELET THERAPY
  2. DABIGATRAN [Interacting]
     Active Substance: DABIGATRAN
     Dosage: 75 MG, BID

REACTIONS (3)
  - Gastrointestinal haemorrhage [None]
  - Drug administration error [None]
  - Labelled drug-drug interaction medication error [None]
